FAERS Safety Report 6160425-3 (Version None)
Quarter: 2009Q2

REPORT INFORMATION
  Report Type: 
  Country: None (occurrence: None)
  Receive Date: 20090420
  Receipt Date: 20090417
  Transmission Date: 20091009
  Serious: Yes (Life-Threatening, Hospitalization)
  Sender: FDA-Public Use
  Company Number: CH-JNJFOC-20090404018

PATIENT
  Age: 50 Year
  Sex: Female

DRUGS (13)
  1. RISPERDAL [Suspect]
     Route: 048
  2. RISPERDAL [Suspect]
     Route: 048
  3. RISPERDAL [Suspect]
     Route: 048
  4. RISPERDAL [Suspect]
     Indication: SCHIZOPHRENIA, PARANOID TYPE
     Route: 048
  5. RISPERDAL CONSTA [Suspect]
     Route: 030
  6. RISPERDAL CONSTA [Suspect]
     Route: 030
  7. RISPERDAL CONSTA [Suspect]
     Route: 030
  8. RISPERDAL CONSTA [Suspect]
     Route: 030
  9. RISPERDAL CONSTA [Suspect]
     Indication: SCHIZOPHRENIA, PARANOID TYPE
     Route: 030
  10. KEPPRA [Suspect]
     Indication: DRUG USE FOR UNKNOWN INDICATION
     Route: 048
  11. VALIUM [Concomitant]
     Route: 048
  12. KEMADRIN [Concomitant]
     Route: 048
  13. DALMADORM [Concomitant]
     Route: 048

REACTIONS (4)
  - COMA [None]
  - EPILEPSY [None]
  - HYPONATRAEMIA [None]
  - WATER INTOXICATION [None]
